FAERS Safety Report 5258628-5 (Version None)
Quarter: 2007Q1

REPORT INFORMATION
  Report Type: 
  Country: None (occurrence: None)
  Receive Date: 20070308
  Receipt Date: 20070305
  Transmission Date: 20070707
  Serious: Yes (Other)
  Sender: FDA-Public Use
  Company Number: IR-BRISTOL-MYERS SQUIBB COMPANY-13702634

PATIENT
  Age: 1 Day
  Sex: Male

DRUGS (3)
  1. CAPTOPRIL [Suspect]
     Indication: CARDIAC FAILURE CONGESTIVE
  2. FUROSEMIDE [Suspect]
     Indication: CARDIAC FAILURE CONGESTIVE
  3. DIGOXIN [Suspect]
     Indication: CARDIAC FAILURE CONGESTIVE

REACTIONS (4)
  - ANURIA [None]
  - HYPOTENSION [None]
  - RENAL IMPAIRMENT [None]
  - RESPIRATORY DISTRESS [None]
